FAERS Safety Report 8927993 (Version 1)
Quarter: 2012Q4

REPORT INFORMATION
  Report Type: Spontaneous
  Country: US (occurrence: None)
  Receive Date: 20121120
  Receipt Date: 20121120
  Transmission Date: 20130627
  Serious: Yes (Life-Threatening)
  Sender: FDA-Public Use
  Company Number: 2012US000018

PATIENT
  Sex: Female

DRUGS (2)
  1. ENTEREG [Suspect]
     Indication: PROMOTION OF WOUND HEALING
     Dosage: 12  MG; 1X; PO
     Route: 048
  2. CEFOXITIN [Concomitant]

REACTIONS (1)
  - Anaphylactic reaction [None]
